FAERS Safety Report 14388050 (Version 2)
Quarter: 2018Q2

REPORT INFORMATION
  Report Type: Spontaneous
  Country: US (occurrence: US)
  Receive Date: 20180115
  Receipt Date: 20180626
  Transmission Date: 20180711
  Serious: Yes (Other)
  Sender: FDA-Public Use
  Company Number: US-SA-2017SA207437

PATIENT
  Age: 51 Year
  Sex: Female
  Weight: 112.94 kg

DRUGS (23)
  1. DEXAMETHASONE. [Concomitant]
     Active Substance: DEXAMETHASONE
  2. HERCEPTIN [Concomitant]
     Active Substance: TRASTUZUMAB
  3. CARISOPRODOL. [Concomitant]
     Active Substance: CARISOPRODOL
  4. OXYCODONE HYDROCHLORIDE;PARACETAMOL [Concomitant]
  5. SOMA [Concomitant]
     Active Substance: CARISOPRODOL
     Dosage: UNK
  6. LOTEPREDNOL ETABONATE [Concomitant]
     Active Substance: LOTEPREDNOL ETABONATE
  7. PROMETHAZINE [Concomitant]
     Active Substance: PROMETHAZINE\PROMETHAZINE HYDROCHLORIDE
  8. TAXOTERE [Suspect]
     Active Substance: DOCETAXEL
     Dosage: 164 MG,Q3W
     Route: 042
     Dates: start: 20090121, end: 20090121
  9. PARAPLATIN [Concomitant]
     Active Substance: CARBOPLATIN
  10. ACTOS [Concomitant]
     Active Substance: PIOGLITAZONE HYDROCHLORIDE
  11. SALBUTAMOL [Concomitant]
     Active Substance: ALBUTEROL
  12. GLIMEPIRIDE. [Concomitant]
     Active Substance: GLIMEPIRIDE
  13. METHOCARBAMOL. [Concomitant]
     Active Substance: METHOCARBAMOL
  14. SOMA [Concomitant]
     Active Substance: CARISOPRODOL
     Dosage: UNK UNK, Q3W
  15. TAXOTERE [Suspect]
     Active Substance: DOCETAXEL
     Dosage: 164 MG,Q3W
     Route: 042
     Dates: start: 20090520, end: 20090520
  16. CETIRIZINE HYDROCHLORIDE. [Concomitant]
     Active Substance: CETIRIZINE HYDROCHLORIDE
  17. HYDROCHLOROTHIAZIDE. [Concomitant]
     Active Substance: HYDROCHLOROTHIAZIDE
  18. LEVEMIR [Concomitant]
     Active Substance: INSULIN DETEMIR
  19. CRESTOR [Concomitant]
     Active Substance: ROSUVASTATIN CALCIUM
  20. ALL OTHER THERAPEUTIC PRODUCTS [Concomitant]
     Active Substance: UNSPECIFIED INGREDIENT
  21. HYDROCODONE [Concomitant]
     Active Substance: HYDROCODONE
  22. LEXAPRO [Concomitant]
     Active Substance: ESCITALOPRAM OXALATE
  23. GABAPENTIN. [Concomitant]
     Active Substance: GABAPENTIN

REACTIONS (2)
  - Alopecia [Recovering/Resolving]
  - Psychological trauma [Unknown]
